FAERS Safety Report 6404202-4 (Version None)
Quarter: 2009Q4

REPORT INFORMATION
  Report Type: 
  Country: None (occurrence: None)
  Receive Date: 20091016
  Receipt Date: 20091008
  Transmission Date: 20100525
  Serious: Yes (Life-Threatening)
  Sender: FDA-Public Use
  Company Number: GB-PFIZER INC-2009280138

PATIENT
  Age: 65 Year

DRUGS (2)
  1. SULFASALAZINE [Suspect]
     Indication: RHEUMATOID ARTHRITIS
     Dosage: 1500MG DAILY
     Dates: start: 20090901, end: 20090929
  2. IBUPROFEN [Concomitant]
     Dosage: UNK

REACTIONS (1)
  - NEUTROPENIC SEPSIS [None]
